FAERS Safety Report 7720542-0 (Version None)
Quarter: 2011Q3

REPORT INFORMATION
  Report Type: 
  Country: None (occurrence: None)
  Receive Date: 20110831
  Receipt Date: 20110831
  Transmission Date: 20111222
  Serious: Yes (Life-Threatening, Hospitalization, Disabling)
  Sender: FDA-Public Use
  Company Number: None

PATIENT
  Age: 57 Year
  Sex: Female
  Weight: 77.11 kg

DRUGS (1)
  1. FENTANYL [Suspect]

REACTIONS (10)
  - OVERDOSE [None]
  - RENAL FAILURE [None]
  - UNRESPONSIVE TO STIMULI [None]
  - CONFUSIONAL STATE [None]
  - HEPATIC FAILURE [None]
  - DISORIENTATION [None]
  - APHASIA [None]
  - DEHYDRATION [None]
  - MALAISE [None]
  - ORGAN FAILURE [None]
